FAERS Safety Report 23056959 (Version 1)
Quarter: 2023Q4

REPORT INFORMATION
  Report Type: Spontaneous
  Country: DE (occurrence: DE)
  Receive Date: 20231012
  Receipt Date: 20231012
  Transmission Date: 20240110
  Serious: Yes (Hospitalization, Congenital Anomaly, Other)
  Sender: FDA-Public Use
  Company Number: None

PATIENT
  Age: 1 Day
  Sex: Male
  Weight: 3.22 kg

DRUGS (3)
  1. ACETAMINOPHEN [Concomitant]
     Active Substance: ACETAMINOPHEN
     Indication: Circulatory collapse
     Route: 064
     Dates: start: 20221010, end: 20221010
  2. FOLS+#196;URE [Concomitant]
     Indication: Prophylaxis of neural tube defect
     Route: 064
  3. VENLAFAXINE [Suspect]
     Active Substance: VENLAFAXINE HYDROCHLORIDE
     Indication: Attention deficit hyperactivity disorder
     Dosage: 75 [MG/D ]
     Route: 064
     Dates: start: 20220901, end: 20230528

REACTIONS (3)
  - Respiratory disorder neonatal [Recovered/Resolved]
  - Infantile haemangioma [Unknown]
  - Foetal exposure during pregnancy [Unknown]

NARRATIVE: CASE EVENT DATE: 20230501
